FAERS Safety Report 9483390 (Version 1)
Quarter: 2013Q3

REPORT INFORMATION
  Report Type: Spontaneous
  Country: US (occurrence: US)
  Receive Date: 20130828
  Receipt Date: 20130828
  Transmission Date: 20140515
  Serious: Yes (Hospitalization)
  Sender: FDA-Public Use
  Company Number: US-AMGEN-KDL264571

PATIENT
  Age: 24 Year
  Sex: Female

DRUGS (1)
  1. PROCRIT [Suspect]
     Indication: RENAL FAILURE CHRONIC
     Dosage: 4000 IU, QWK
     Route: 065
     Dates: start: 20070914

REACTIONS (2)
  - Cardiac operation [Recovered/Resolved]
  - Dialysis [Not Recovered/Not Resolved]
